FAERS Safety Report 8197774-3 (Version None)
Quarter: 2012Q1

REPORT INFORMATION
  Report Type: 
  Country: None (occurrence: None)
  Receive Date: 20120227
  Receipt Date: 20120125
  Transmission Date: 20120608
  Serious: No
  Sender: FDA-Public Use
  Company Number: 343709

PATIENT
  Age: 51 Year
  Sex: Male
  Weight: 80.3 kg

DRUGS (3)
  1. VICTOZA [Suspect]
     Indication: TYPE 2 DIABETES MELLITUS
     Dosage: 1.2 MG, QD, SUBCUTANEOUS
     Route: 058
     Dates: start: 20100401, end: 20111001
  2. METFORMIN HCL [Suspect]
     Indication: TYPE 2 DIABETES MELLITUS
     Dosage: 1000 MG, BID, ORAL
     Route: 048
     Dates: start: 20091001
  3. TYSABRI [Concomitant]

REACTIONS (1)
  - BLOOD GLUCOSE FLUCTUATION [None]
